FAERS Safety Report 9914929 (Version 1)
Quarter: 2014Q1

REPORT INFORMATION
  Report Type: Spontaneous
  Country: BE (occurrence: BE)
  Receive Date: 20140220
  Receipt Date: 20140220
  Transmission Date: 20141002
  Serious: Yes (Death)
  Sender: FDA-Public Use
  Company Number: PHHY2014BE020700

PATIENT
  Sex: Male

DRUGS (2)
  1. ACLASTA [Suspect]
     Indication: OSTEOPOROSIS
     Dosage: UNK
     Route: 042
  2. ACLASTA [Suspect]
     Dosage: UNK
     Route: 042

REACTIONS (2)
  - Death [Fatal]
  - Creatinine renal clearance decreased [Unknown]
